FAERS Safety Report 9645422 (Version 2)
Quarter: 2013Q4

REPORT INFORMATION
  Report Type: Spontaneous
  Country: US (occurrence: US)
  Receive Date: 20131025
  Receipt Date: 20131029
  Transmission Date: 20140711
  Serious: Yes (Life-Threatening, Other)
  Sender: FDA-Public Use
  Company Number: US-SA-2013SA106579

PATIENT
  Age: 65 Year
  Sex: Female

DRUGS (5)
  1. LOVENOX [Suspect]
     Indication: DEEP VEIN THROMBOSIS
     Route: 065
     Dates: start: 201206
  2. LOVENOX [Suspect]
     Indication: PULMONARY EMBOLISM
     Route: 065
     Dates: start: 201206
  3. LOVENOX [Suspect]
     Indication: DEEP VEIN THROMBOSIS
     Route: 065
  4. LOVENOX [Suspect]
     Indication: PULMONARY EMBOLISM
     Route: 065
  5. ENOXAPARIN SODIUM - WINTHROP [Suspect]
     Route: 065

REACTIONS (10)
  - Lung neoplasm malignant [Not Recovered/Not Resolved]
  - Dyspnoea [Not Recovered/Not Resolved]
  - Chest pain [Not Recovered/Not Resolved]
  - Hiatus hernia [Not Recovered/Not Resolved]
  - Epistaxis [Recovered/Resolved]
  - Blood urine present [Recovered/Resolved]
  - Pain in extremity [Not Recovered/Not Resolved]
  - Gait disturbance [Not Recovered/Not Resolved]
  - Injection site bruising [Not Recovered/Not Resolved]
  - Erythema [Not Recovered/Not Resolved]
